FAERS Safety Report 8828737 (Version 1)
Quarter: 2012Q4

REPORT INFORMATION
  Report Type: 
  Country: GB (occurrence: GB)
  Receive Date: 20121008
  Receipt Date: 20121008
  Transmission Date: 20130627
  Serious: Yes (Hospitalization)
  Sender: FDA-Public Use
  Company Number: GB-ROCHE-1137345

PATIENT
  Age: 47 Year
  Sex: Female
  Weight: 67 kg

DRUGS (12)
  1. BEVACIZUMAB [Suspect]
     Indication: PRODUCT USED FOR UNKNOWN INDICATION
     Route: 042
     Dates: start: 20061214
  2. CAPECITABINE [Suspect]
     Indication: COLON CANCER
     Route: 048
     Dates: start: 20061214, end: 20070108
  3. CAPECITABINE [Suspect]
     Route: 065
     Dates: end: 20070130
  4. CAPECITABINE [Suspect]
     Route: 065
     Dates: start: 20070201
  5. ASPIRIN [Suspect]
     Indication: PRODUCT USED FOR UNKNOWN INDICATION
     Route: 065
     Dates: start: 2007, end: 20070116
  6. CETUXIMAB [Suspect]
     Indication: PRODUCT USED FOR UNKNOWN INDICATION
  7. OXALIPLATIN [Suspect]
     Indication: COLON CANCER
     Route: 042
  8. DEXAMETHASONE [Concomitant]
  9. LANSOPRAZOLE [Concomitant]
     Route: 065
  10. LOPERAMIDE [Concomitant]
     Route: 065
  11. LORAZEPAM [Concomitant]
     Route: 065
  12. METOCLOPRAMID [Concomitant]
     Route: 065

REACTIONS (3)
  - Vomiting [Recovered/Resolved]
  - Throat tightness [Recovered/Resolved]
  - Faeces discoloured [Recovered/Resolved]
